FAERS Safety Report 7049913-5 (Version None)
Quarter: 2010Q4

REPORT INFORMATION
  Report Type: 
  Country: None (occurrence: None)
  Receive Date: 20101018
  Receipt Date: 20101006
  Transmission Date: 20110411
  Serious: Yes (Other)
  Sender: FDA-Public Use
  Company Number: US-SANOFI-AVENTIS-2010SA061272

PATIENT
  Age: 78 Year
  Sex: Male

DRUGS (3)
  1. LANTUS [Suspect]
     Dosage: DOSE:33 UNIT(S)
     Route: 058
     Dates: start: 20050101
  2. OPTICLICK [Suspect]
     Dates: start: 20050101
  3. ALL OTHER THERAPEUTIC PRODUCTS [Concomitant]

REACTIONS (3)
  - BLADDER OPERATION [None]
  - GAIT DISTURBANCE [None]
  - VISUAL IMPAIRMENT [None]
